FAERS Safety Report 7891855-7 (Version None)
Quarter: 2011Q4

REPORT INFORMATION
  Report Type: 
  Country: None (occurrence: None)
  Receive Date: 20111103
  Receipt Date: 20110810
  Transmission Date: 20120403
  Serious: No
  Sender: FDA-Public Use
  Company Number: US-AMGEN-USASP2011032639

PATIENT
  Age: 72 Year
  Sex: Male

DRUGS (16)
  1. ENBREL [Suspect]
     Indication: RHEUMATOID ARTHRITIS
     Dosage: 50 MG, QWK
     Dates: start: 20110526
  2. NORVASC [Concomitant]
     Dosage: 5 MG, QD
     Route: 048
  3. CALTRATE + D                       /00188401/ [Concomitant]
     Dosage: 600 MG, BID
     Route: 048
  4. LIQUITEARS [Concomitant]
     Dosage: UNK UNK, BID
  5. FISH OIL [Concomitant]
     Dosage: 1200 MG, BID
  6. MOBIC [Concomitant]
     Dosage: 15 MG, QD
     Route: 048
  7. ZYRTEC [Concomitant]
     Dosage: 10 MG, PRN
     Route: 048
  8. ASMANEX TWISTHALER [Concomitant]
     Dosage: UNK UNK, QD
  9. COMBIVENT [Concomitant]
     Dosage: UNK UNK, QID
  10. PREDNISONE [Concomitant]
     Dosage: 5 MG, QD
     Route: 048
  11. NEXIUM [Concomitant]
     Dosage: 40 MG, QD
     Route: 048
  12. ACTONEL [Concomitant]
     Dosage: 150 MG, QMO
     Route: 048
  13. MULTIVITAMIN                       /00097801/ [Concomitant]
     Dosage: UNK UNK, QD
     Route: 048
  14. XALATAN [Concomitant]
     Dosage: 0.005 %, QD
     Route: 047
  15. VENTOLIN [Concomitant]
     Dosage: UNK UNK, QD
  16. LISINOPRIL [Concomitant]
     Dosage: 40 MG, QD
     Route: 048

REACTIONS (3)
  - ASTHENIA [None]
  - FATIGUE [None]
  - OCULAR HYPERAEMIA [None]
